FAERS Safety Report 18689052 (Version 1)
Quarter: 2020Q4

REPORT INFORMATION
  Report Type: Spontaneous
  Country: US (occurrence: US)
  Receive Date: 20201231
  Receipt Date: 20201231
  Transmission Date: 20210114
  Serious: Yes (Other)
  Sender: FDA-Public Use
  Company Number: US-STRIDES ARCOLAB LIMITED-2020SP016310

PATIENT
  Age: 55 Year
  Sex: Male

DRUGS (10)
  1. EVEROLIMUS. [Suspect]
     Active Substance: EVEROLIMUS
     Dosage: UNK, HIGH DOSE
     Route: 065
     Dates: start: 2018
  2. MYCOPHENOLATE MOFETIL. [Suspect]
     Active Substance: MYCOPHENOLATE MOFETIL
     Indication: LIVER TRANSPLANT
     Dosage: 1500 MILLIGRAM, BID
     Route: 065
     Dates: start: 2015, end: 2015
  3. TACROLIMUS. [Suspect]
     Active Substance: TACROLIMUS
     Indication: LIVER TRANSPLANT
     Dosage: UNK
     Route: 065
     Dates: start: 2015
  4. EVEROLIMUS. [Suspect]
     Active Substance: EVEROLIMUS
     Indication: LIVER TRANSPLANT
     Dosage: UNK
     Route: 065
  5. PREDNISOLONE. [Suspect]
     Active Substance: PREDNISOLONE
     Dosage: UNK, INCREASED DOSE, RESTARTED
     Route: 065
     Dates: start: 201807
  6. EVEROLIMUS. [Suspect]
     Active Substance: EVEROLIMUS
     Dosage: UNK, RESTARTED
     Route: 065
  7. PREDNISOLONE. [Suspect]
     Active Substance: PREDNISOLONE
     Dosage: 10 MILLIGRAM DAILY, DOSE REDUCED
     Route: 065
  8. MYCOPHENOLATE MOFETIL. [Suspect]
     Active Substance: MYCOPHENOLATE MOFETIL
     Dosage: 1500 MILLIGRAM, BID, RESTARTED
     Route: 065
     Dates: start: 201604
  9. PREDNISOLONE. [Suspect]
     Active Substance: PREDNISOLONE
     Indication: LIVER TRANSPLANT
     Dosage: 20 MILLIGRAM DAILY
     Route: 065
     Dates: start: 2015
  10. PREDNISOLONE. [Suspect]
     Active Substance: PREDNISOLONE
     Dosage: 15 - 20 MILLIGRAM DAILY
     Route: 065
     Dates: start: 2016

REACTIONS (8)
  - Chronic kidney disease [Unknown]
  - Transplant rejection [Unknown]
  - Hypertension [Unknown]
  - Condition aggravated [Unknown]
  - Dyslipidaemia [Unknown]
  - Colitis [Unknown]
  - Acute kidney injury [Recovered/Resolved]
  - Steroid diabetes [Unknown]

NARRATIVE: CASE EVENT DATE: 2015
